FAERS Safety Report 5379277-4 (Version None)
Quarter: 2007Q3

REPORT INFORMATION
  Report Type: 
  Country: None (occurrence: None)
  Receive Date: 20070705
  Receipt Date: 20070625
  Transmission Date: 20080115
  Serious: Yes (Disabling)
  Sender: FDA-Public Use
  Company Number: DE-SHR-DE-2007-010747

PATIENT
  Sex: Male
  Weight: 80 kg

DRUGS (3)
  1. MAGNEVIST [Suspect]
     Indication: NUCLEAR MAGNETIC RESONANCE IMAGING
     Dosage: 32 ML, 1 DOSE
     Route: 042
     Dates: start: 20020911, end: 20020911
  2. OMNISCAN [Suspect]
     Dosage: 18 ML, 1 DOSE
     Route: 042
     Dates: start: 20020918, end: 20020918
  3. IMMUNOSUPPRESSIVE AGENTS [Concomitant]

REACTIONS (1)
  - NEPHROGENIC SYSTEMIC FIBROSIS [None]
